FAERS Safety Report 4842374-3 (Version None)
Quarter: 2005Q4

REPORT INFORMATION
  Report Type: 
  Country: None (occurrence: None)
  Receive Date: 20051201
  Receipt Date: 20050627
  Transmission Date: 20060501
  Serious: Yes (Death)
  Sender: FDA-Public Use
  Company Number: US-JNJFOC-20050305595

PATIENT
  Sex: Female
  Weight: 58.97 kg

DRUGS (5)
  1. ORTHO EVRA [Suspect]
     Indication: CONTRACEPTION
     Route: 062
     Dates: start: 20040516, end: 20040904
  2. ORTHO EVRA [Suspect]
     Route: 062
     Dates: start: 20040516, end: 20040904
  3. ZOLOFT [Concomitant]
     Indication: DEPRESSION
     Route: 065
  4. TYLENOL [Concomitant]
     Route: 065
  5. ANTI-INFLAMMATORY [Concomitant]
     Route: 065

REACTIONS (2)
  - ARTHRALGIA [None]
  - PULMONARY EMBOLISM [None]
